FAERS Safety Report 7777773-3 (Version None)
Quarter: 2011Q3

REPORT INFORMATION
  Report Type: 
  Country: None (occurrence: None)
  Receive Date: 20110926
  Receipt Date: 20110915
  Transmission Date: 20111222
  Serious: Yes (Other)
  Sender: FDA-Public Use
  Company Number: NZ-BIOGENIDEC-2011BI035368

PATIENT
  Age: 38 Year
  Sex: Female

DRUGS (3)
  1. AVONEX [Suspect]
     Indication: PRODUCT USED FOR UNKNOWN INDICATION
     Route: 030
     Dates: start: 20110526, end: 20110609
  2. AVONEX [Suspect]
     Route: 030
     Dates: start: 20110609, end: 20110908
  3. UNKNOWN MEDICATION [Concomitant]
     Indication: PROPHYLAXIS

REACTIONS (8)
  - PAIN IN EXTREMITY [None]
  - CHILLS [None]
  - HEADACHE [None]
  - HYPERSENSITIVITY [None]
  - BACK PAIN [None]
  - REACTION TO PRESERVATIVES [None]
  - PALLOR [None]
  - NECK PAIN [None]
